FAERS Safety Report 19912401 (Version 2)
Quarter: 2021Q4

REPORT INFORMATION
  Report Type: Other
  Country: CA (occurrence: CA)
  Receive Date: 20211004
  Receipt Date: 20211008
  Transmission Date: 20220303
  Serious: No
  Sender: FDA-Public Use
  Company Number: CA-ROCHE-2927045

PATIENT
  Sex: Female

DRUGS (2)
  1. OCREVUS [Suspect]
     Active Substance: OCRELIZUMAB
     Indication: Relapsing-remitting multiple sclerosis
     Dosage: MORE DOSAGE INFORMATION IS 300 MG AT DAY 0 AND 14, THEN 600 MG EVERY 6 MONTH
     Route: 042
     Dates: start: 20191028
  2. PFIZER BIONTECH VACCINE (UNK INGREDIENTS) [Concomitant]
     Dosage: 1ST DOSE
     Dates: start: 20210818

REACTIONS (3)
  - Herpes zoster [Unknown]
  - Skin burning sensation [Recovered/Resolved]
  - Rash [Recovered/Resolved]
